FAERS Safety Report 22631102 (Version 1)
Quarter: 2023Q2

REPORT INFORMATION
  Report Type: Report from Study
  Country: BG (occurrence: BG)
  Receive Date: 20230622
  Receipt Date: 20230622
  Transmission Date: 20230721
  Serious: Yes (Hospitalization)
  Sender: FDA-Public Use
  Company Number: BG-ABBVIE-5174379

PATIENT
  Age: 31 Year
  Sex: Female
  Weight: 57 kg

DRUGS (4)
  1. PLACEBO [Suspect]
     Active Substance: UNSPECIFIED INGREDIENT
     Indication: Dermatitis atopic
     Route: 048
     Dates: start: 20190619, end: 20191024
  2. UPADACITINIB [Suspect]
     Active Substance: UPADACITINIB
     Indication: Dermatitis atopic
     Route: 048
     Dates: start: 20191025, end: 20230514
  3. ETHINYLESTRADIOL and DROSPIRENONE [Concomitant]
     Indication: Polycystic ovaries
     Route: 048
     Dates: start: 20190401, end: 20230519
  4. SYNCHROLINE SYNCHROBASE OMEGA [Concomitant]
     Indication: Dry skin prophylaxis
     Dosage: 1 APPLICATION
     Route: 061
     Dates: start: 20190507, end: 20230519

REACTIONS (1)
  - Hepatotoxicity [Not Recovered/Not Resolved]

NARRATIVE: CASE EVENT DATE: 20230515
